FAERS Safety Report 5317158-2 (Version None)
Quarter: 2007Q2

REPORT INFORMATION
  Report Type: 
  Country: None (occurrence: None)
  Receive Date: 20070504
  Receipt Date: 20070423
  Transmission Date: 20071010
  Serious: Yes (Disabling, Other)
  Sender: FDA-Public Use
  Company Number: GB-PFIZER INC-2006155070

PATIENT
  Age: 35 Year
  Sex: Female

DRUGS (2)
  1. DEPO-PROVERA [Suspect]
     Indication: CONTRACEPTION
     Route: 030
     Dates: start: 19980101, end: 19980101
  2. DEPO-PROVERA [Suspect]
     Route: 030
     Dates: start: 20050201, end: 20050201

REACTIONS (6)
  - AMENORRHOEA [None]
  - ENDOMETRIAL ATROPHY [None]
  - INFERTILITY [None]
  - OESTROGEN DEFICIENCY [None]
  - OSTEOPENIA [None]
  - WEIGHT INCREASED [None]
